FAERS Safety Report 6074715-6 (Version None)
Quarter: 2009Q1

REPORT INFORMATION
  Report Type: 
  Country: None (occurrence: None)
  Receive Date: 20090212
  Receipt Date: 20090130
  Transmission Date: 20090719
  Serious: Yes (Hospitalization)
  Sender: FDA-Public Use
  Company Number: US-SANOFI-SYNTHELABO-F03200900003

PATIENT
  Sex: Female
  Weight: 51.3 kg

DRUGS (19)
  1. ASPIRIN [Concomitant]
     Indication: DRUG USE FOR UNKNOWN INDICATION
     Dosage: UNK
     Route: 065
     Dates: start: 20041201
  2. ACTONEL [Concomitant]
     Indication: DRUG USE FOR UNKNOWN INDICATION
     Dosage: UNK
     Route: 065
     Dates: start: 20081101
  3. MEGACE [Concomitant]
     Indication: DRUG USE FOR UNKNOWN INDICATION
     Dosage: UNK
     Route: 065
     Dates: start: 20080919
  4. SYNTHROID [Concomitant]
     Indication: DRUG USE FOR UNKNOWN INDICATION
     Dosage: UNK
     Route: 065
     Dates: start: 20081101
  5. COMPAZINE [Concomitant]
     Indication: DRUG USE FOR UNKNOWN INDICATION
     Dosage: UNK
     Route: 065
     Dates: start: 20081015
  6. ZOFRAN [Concomitant]
     Indication: DRUG USE FOR UNKNOWN INDICATION
     Dosage: UNK
     Route: 065
     Dates: start: 20081015
  7. LIPITOR [Concomitant]
     Indication: DRUG USE FOR UNKNOWN INDICATION
     Dosage: UNK
     Route: 065
     Dates: start: 20050101
  8. SPIRIVA [Concomitant]
     Indication: DRUG USE FOR UNKNOWN INDICATION
     Dosage: UNK
     Route: 065
     Dates: start: 19830101
  9. ATROVENT [Concomitant]
     Indication: DRUG USE FOR UNKNOWN INDICATION
     Dosage: UNK
     Route: 065
     Dates: start: 19830101
  10. PREDNISONE [Concomitant]
     Indication: DRUG USE FOR UNKNOWN INDICATION
     Dosage: UNK
     Route: 065
     Dates: start: 20031218
  11. ACCOLATE [Concomitant]
     Indication: DRUG USE FOR UNKNOWN INDICATION
     Dosage: UNK
     Route: 065
  12. DIGOXIN [Concomitant]
     Indication: DRUG USE FOR UNKNOWN INDICATION
     Dosage: UNK
     Route: 065
     Dates: start: 19930101
  13. METFORMIN [Concomitant]
     Indication: DRUG USE FOR UNKNOWN INDICATION
     Dosage: UNK
     Route: 065
     Dates: start: 20041230
  14. GLUCOPHAGE [Concomitant]
     Indication: DRUG USE FOR UNKNOWN INDICATION
     Dosage: UNK
     Route: 065
     Dates: start: 20050309
  15. CALCIUM FOLINATE [Suspect]
     Indication: COLORECTAL CANCER
     Route: 042
     Dates: start: 20081015, end: 20081015
  16. FLUOROURACIL [Suspect]
     Indication: COLORECTAL CANCER
     Dosage: 620 MG BOLUS EVERY TWO WEEKS
     Route: 042
     Dates: start: 20081015, end: 20081015
  17. FLUOROURACIL [Suspect]
     Route: 042
     Dates: start: 20081015, end: 20081015
  18. SUNITINIB MALATE [Suspect]
     Indication: COLORECTAL CANCER
     Route: 048
     Dates: start: 20081015
  19. OXALIPLATIN [Suspect]
     Indication: COLORECTAL CANCER
     Route: 042
     Dates: start: 20081015, end: 20081015

REACTIONS (5)
  - DYSPNOEA [None]
  - GASTRIC ULCER [None]
  - HAEMOPTYSIS [None]
  - PANCYTOPENIA [None]
  - PLEURITIC PAIN [None]
